FAERS Safety Report 5623349-3 (Version None)
Quarter: 2008Q1

REPORT INFORMATION
  Report Type: 
  Country: None (occurrence: None)
  Receive Date: 20080212
  Receipt Date: 20080131
  Transmission Date: 20080703
  Serious: Yes (Other)
  Sender: FDA-Public Use
  Company Number: GB-SANOFI-SYNTHELABO-A01200801166

PATIENT
  Age: 67 Year
  Sex: Female

DRUGS (6)
  1. RAMIPRIL [Interacting]
     Indication: MYOCARDIAL INFARCTION
     Dosage: UNK
     Route: 065
  2. PREGABALIN [Interacting]
     Indication: TRIGEMINAL NEURALGIA
     Route: 065
  3. CARDICOR [Interacting]
     Indication: MYOCARDIAL INFARCTION
     Dosage: UNK
     Route: 065
  4. ASPIRIN [Interacting]
     Indication: MYOCARDIAL INFARCTION
     Dosage: UNK
     Route: 065
  5. PLAVIX [Suspect]
     Indication: MYOCARDIAL INFARCTION
     Dosage: UNK
     Route: 048
  6. SIMVASTATIN [Interacting]
     Indication: MYOCARDIAL INFARCTION
     Dosage: UNK
     Route: 065

REACTIONS (2)
  - DRUG INTERACTION [None]
  - TRIGEMINAL NEURALGIA [None]
